FAERS Safety Report 9195160 (Version 1)
Quarter: 2013Q1

REPORT INFORMATION
  Report Type: Spontaneous
  Country: US (occurrence: US)
  Receive Date: 20130328
  Receipt Date: 20130328
  Transmission Date: 20140127
  Serious: No
  Sender: FDA-Public Use
  Company Number: US-ALLERGAN-1217255US

PATIENT
  Age: 55 Year
  Sex: Female

DRUGS (1)
  1. LUMIGAN [Suspect]
     Indication: ALOPECIA
     Dosage: UNK, QD
     Route: 061
     Dates: start: 201005

REACTIONS (4)
  - Therapeutic response unexpected [Not Recovered/Not Resolved]
  - Off label use [Unknown]
  - Therapeutic response unexpected [Unknown]
  - Folliculitis [Unknown]
